FAERS Safety Report 16247320 (Version 1)
Quarter: 2019Q2

REPORT INFORMATION
  Report Type: Spontaneous
  Country: US (occurrence: US)
  Receive Date: 20190322
  Receipt Date: 20190322
  Transmission Date: 20190711
  Serious: Yes (Death, Hospitalization)
  Sender: FDA-Public Use
  Company Number: None

PATIENT
  Age: 55 Year
  Sex: Female

DRUGS (26)
  1. LETAIRIS [Suspect]
     Active Substance: AMBRISENTAN
     Indication: PULMONARY ARTERIAL HYPERTENSION
     Route: 048
     Dates: start: 201402
  2. AZATHIOPRINE. [Concomitant]
     Active Substance: AZATHIOPRINE
  3. ZOCOR [Concomitant]
     Active Substance: SIMVASTATIN
  4. K-TAB [Concomitant]
     Active Substance: POTASSIUM CHLORIDE
  5. WARFARIN [Concomitant]
     Active Substance: WARFARIN
  6. FLONASE [Concomitant]
     Active Substance: FLUTICASONE PROPIONATE
  7. OMEPRAZOLE. [Concomitant]
     Active Substance: OMEPRAZOLE
  8. VITAMIN B1 [Concomitant]
     Active Substance: THIAMINE HYDROCHLORIDE
  9. MVI [Concomitant]
     Active Substance: VITAMINS
  10. VITAMIN B12 [Concomitant]
     Active Substance: CYANOCOBALAMIN
  11. FUROSEMIDE. [Concomitant]
     Active Substance: FUROSEMIDE
  12. HYDROXYCHLOROQUINE [Concomitant]
     Active Substance: HYDROXYCHLOROQUINE
  13. RANITIDINE. [Concomitant]
     Active Substance: RANITIDINE
  14. DILAUDID [Concomitant]
     Active Substance: HYDROMORPHONE HYDROCHLORIDE
  15. PERCOCET [Concomitant]
     Active Substance: ACETAMINOPHEN\OXYCODONE HYDROCHLORIDE
  16. UPTRAVI [Concomitant]
     Active Substance: SELEXIPAG
  17. LORATADINE. [Concomitant]
     Active Substance: LORATADINE
  18. VOLTOREN TOP GEL [Concomitant]
  19. VENTOLIN HFA [Concomitant]
     Active Substance: ALBUTEROL SULFATE
  20. SILDENAFIL. [Concomitant]
     Active Substance: SILDENAFIL
  21. AMBIEN [Concomitant]
     Active Substance: ZOLPIDEM TARTRATE
  22. AMILORIDE [Concomitant]
     Active Substance: AMILORIDE
  23. COLCHICINE. [Concomitant]
     Active Substance: COLCHICINE
  24. LUPRON DEPOT [Concomitant]
     Active Substance: LEUPROLIDE ACETATE
  25. GLIPIZIDE. [Concomitant]
     Active Substance: GLIPIZIDE
  26. SLOW-MAG [Concomitant]
     Active Substance: MAGNESIUM CHLORIDE

REACTIONS (1)
  - Retroperitoneal haemorrhage [None]

NARRATIVE: CASE EVENT DATE: 20190305
